FAERS Safety Report 15963344 (Version 4)
Quarter: 2019Q3

REPORT INFORMATION
  Report Type: Spontaneous
  Country: US (occurrence: US)
  Receive Date: 20190214
  Receipt Date: 20190925
  Transmission Date: 20191004
  Serious: Yes (Hospitalization, Other)
  Sender: FDA-Public Use
  Company Number: US-ASTRAZENECA-2018SF14311

PATIENT
  Age: 784 Month
  Sex: Female
  Weight: 64.9 kg

DRUGS (25)
  1. ESCITALOPRAM [Concomitant]
     Active Substance: ESCITALOPRAM OXALATE
  2. GLUCAGEN [Concomitant]
     Active Substance: GLUCAGON HYDROCHLORIDE
  3. THERAGRAN [Concomitant]
     Active Substance: VITAMINS
  4. SEROQUEL [Concomitant]
     Active Substance: QUETIAPINE FUMARATE
  5. NEXIUM [Suspect]
     Active Substance: ESOMEPRAZOLE MAGNESIUM
     Indication: GASTROOESOPHAGEAL REFLUX DISEASE
     Route: 048
     Dates: start: 20110601, end: 20170501
  6. DIAZEPAM. [Concomitant]
     Active Substance: DIAZEPAM
  7. ARIPIPRAZOLE. [Concomitant]
     Active Substance: ARIPIPRAZOLE
  8. ATIVAN [Concomitant]
     Active Substance: LORAZEPAM
  9. FOLIC ACID. [Concomitant]
     Active Substance: FOLIC ACID
  10. CEFTIN [Concomitant]
     Active Substance: CEFUROXIME AXETIL
  11. IMODIUM [Concomitant]
     Active Substance: LOPERAMIDE HYDROCHLORIDE
  12. PROTONIX [Suspect]
     Active Substance: PANTOPRAZOLE SODIUM
     Indication: GASTROOESOPHAGEAL REFLUX DISEASE
     Route: 065
     Dates: start: 201702
  13. DOXYCYCLINE. [Concomitant]
     Active Substance: DOXYCYCLINE
  14. LYRICA [Concomitant]
     Active Substance: PREGABALIN
  15. DULOXETINE. [Concomitant]
     Active Substance: DULOXETINE
  16. AZITHROMYCIN ANHYDROUS. [Concomitant]
     Active Substance: AZITHROMYCIN ANHYDROUS
  17. TIZANIDINE. [Concomitant]
     Active Substance: TIZANIDINE
  18. NICODERM CQ [Concomitant]
     Active Substance: NICOTINE
  19. ZOFRAN [Concomitant]
     Active Substance: ONDANSETRON HYDROCHLORIDE
  20. VALIUM [Concomitant]
     Active Substance: DIAZEPAM
  21. DIAZEPAM. [Concomitant]
     Active Substance: DIAZEPAM
  22. MELOXICAM. [Concomitant]
     Active Substance: MELOXICAM
  23. NEXIUM [Suspect]
     Active Substance: ESOMEPRAZOLE MAGNESIUM
     Indication: GASTROOESOPHAGEAL REFLUX DISEASE
     Route: 048
     Dates: start: 201206, end: 201705
  24. MIRTAZAPINE. [Concomitant]
     Active Substance: MIRTAZAPINE
  25. LEVAQUIN [Concomitant]
     Active Substance: LEVOFLOXACIN

REACTIONS (3)
  - Acute kidney injury [Not Recovered/Not Resolved]
  - Renal injury [Unknown]
  - Chronic kidney disease [Not Recovered/Not Resolved]

NARRATIVE: CASE EVENT DATE: 201702
